FAERS Safety Report 8512643-4 (Version None)
Quarter: 2012Q2

REPORT INFORMATION
  Report Type: 
  Country: None (occurrence: None)
  Receive Date: 20120405
  Receipt Date: 20081119
  Transmission Date: 20120825
  Serious: Yes (Other)
  Sender: FDA-Public Use
  Company Number: PHEH2008US10445

PATIENT
  Age: 48 Year
  Sex: Female

DRUGS (2)
  1. CALCIUM WITH VITAMIN D (CALCIUM PHOSPHATE, CALCIUM SODIUM LACTATE, ERG [Concomitant]
  2. RECLAST [Suspect]
     Indication: OSTEOPOROSIS
     Dosage: 5 MG, ONCE/SINGLE, INFUSION
     Dates: start: 20081107, end: 20081107

REACTIONS (9)
  - NAUSEA [None]
  - MUSCLE SPASMS [None]
  - DISCOMFORT [None]
  - DEHYDRATION [None]
  - BONE PAIN [None]
  - BACK PAIN [None]
  - CHEST PAIN [None]
  - MYALGIA [None]
  - PAIN [None]
